FAERS Safety Report 13448252 (Version 1)
Quarter: 2017Q2

REPORT INFORMATION
  Report Type: Report from Study
  Country: None (occurrence: US)
  Receive Date: 20170417
  Receipt Date: 20170417
  Transmission Date: 20170830
  Serious: Yes (Other)
  Sender: FDA-Public Use
  Company Number: US-ABBVIE-17K-163-1942283-00

PATIENT
  Age: 68 Year
  Sex: Female

DRUGS (1)
  1. HUMIRA [Suspect]
     Active Substance: ADALIMUMAB
     Indication: CROHN^S DISEASE
     Route: 058

REACTIONS (5)
  - Immune system disorder [Unknown]
  - Viral upper respiratory tract infection [Recovering/Resolving]
  - Cataract [Recovering/Resolving]
  - Blindness unilateral [Not Recovered/Not Resolved]
  - Cataract operation complication [Recovering/Resolving]

NARRATIVE: CASE EVENT DATE: 201701
